FAERS Safety Report 8607920-2 (Version None)
Quarter: 2012Q3

REPORT INFORMATION
  Report Type: 
  Country: None (occurrence: None)
  Receive Date: 20120821
  Receipt Date: 20110726
  Transmission Date: 20120928
  Serious: No
  Sender: FDA-Public Use
  Company Number: US-MYLANLABS-2011S1015550

PATIENT
  Age: 84 Year
  Sex: Male

DRUGS (17)
  1. FISH OIL [Concomitant]
  2. TRAZODONE HYDROCHLORIDE [Concomitant]
  3. ASPIRIN [Concomitant]
  4. NEURONTIN [Concomitant]
  5. GLUCOSAMINE [Concomitant]
  6. SIMVASTATIN [Concomitant]
  7. LEVOXYL [Concomitant]
  8. VITAMIN TAB [Concomitant]
  9. CALCIUM [Concomitant]
  10. BENAZEPRIL HYDROCHLORIDE [Concomitant]
  11. SUMATRIPTAN [Concomitant]
  12. NITROFURANTOIN [Suspect]
     Indication: URINARY TRACT INFECTION
     Route: 048
     Dates: start: 20110721
  13. FOLIC ACID [Concomitant]
  14. MILK OF MAGNESIA TAB [Concomitant]
  15. SANCTURA [Concomitant]
  16. PRILOSEC [Concomitant]
  17. PIROXICAM [Concomitant]

REACTIONS (2)
  - FEELING ABNORMAL [None]
  - ABDOMINAL PAIN UPPER [None]
